FAERS Safety Report 15191748 (Version 3)
Quarter: 2018Q3

REPORT INFORMATION
  Report Type: Spontaneous
  Country: GB (occurrence: GB)
  Receive Date: 20180724
  Receipt Date: 20180917
  Transmission Date: 20181010
  Serious: Yes (Hospitalization, Other)
  Sender: FDA-Public Use
  Company Number: GB-MYLANLABS-2018M1053789

PATIENT
  Age: 33 Year
  Sex: Male

DRUGS (3)
  1. PREDNISOLONE. [Suspect]
     Active Substance: PREDNISOLONE
     Indication: COLITIS ULCERATIVE
     Dosage: REGIMEN 1
     Route: 048
  2. MERCAPTOPURINE. [Suspect]
     Active Substance: MERCAPTOPURINE
     Indication: COLITIS ULCERATIVE
     Dosage: 75 MG, QD
     Route: 065
  3. MESALAZINE [Concomitant]
     Active Substance: MESALAMINE
     Indication: COLITIS ULCERATIVE
     Dosage: 1 G, QD
     Route: 048

REACTIONS (7)
  - Off label use [Unknown]
  - Cytomegalovirus infection [Recovered/Resolved]
  - Sepsis [Unknown]
  - Cytomegalovirus colitis [Recovered/Resolved]
  - Bone marrow failure [Recovered/Resolved]
  - Toxicity to various agents [Recovered/Resolved]
  - Hepatitis [Recovered/Resolved]
